FAERS Safety Report 4264048-2 (Version None)
Quarter: 2004Q1

REPORT INFORMATION
  Report Type: 
  Country: None (occurrence: None)
  Receive Date: 20040102
  Receipt Date: 20031218
  Transmission Date: 20041129
  Serious: Yes (Other)
  Sender: FDA-Public Use
  Company Number: EWC031237390

PATIENT
  Age: 44 Year
  Sex: Female
  Weight: 40 kg

DRUGS (3)
  1. GEMCITABINE HYDROCHLORIDE-IV (GEMCITABINE) [Suspect]
     Dosage: I G
     Dates: start: 20031208, end: 20031208
  2. CERAZETTE (DESOGESTREL) [Suspect]
  3. VALIUM [Concomitant]

REACTIONS (7)
  - ACCIDENTAL EXPOSURE [None]
  - APHONIA [None]
  - LARYNGITIS [None]
  - MUCOSAL HAEMORRHAGE [None]
  - MUCOSAL INFLAMMATION [None]
  - NASAL MUCOSAL DISORDER [None]
  - PAIN [None]
